FAERS Safety Report 15017853 (Version 6)
Quarter: 2019Q2

REPORT INFORMATION
  Report Type: Spontaneous
  Country: US (occurrence: US)
  Receive Date: 20180615
  Receipt Date: 20190625
  Transmission Date: 20190711
  Serious: No
  Sender: FDA-Public Use
  Company Number: US-PFIZER INC-2018243410

PATIENT
  Age: 72 Year
  Sex: Female
  Weight: 101.13 kg

DRUGS (2)
  1. LETROZOLE. [Concomitant]
     Active Substance: LETROZOLE
     Dosage: 2.5 MG, 1X/DAY
     Route: 048
  2. IBRANCE [Suspect]
     Active Substance: PALBOCICLIB
     Indication: BREAST CANCER STAGE IV
     Dosage: 125 MG, 1X/DAY
     Route: 048
     Dates: start: 201710

REACTIONS (5)
  - Body height decreased [Unknown]
  - Dehydration [Unknown]
  - Blood glucose decreased [Unknown]
  - Weight increased [Unknown]
  - Macule [Recovering/Resolving]

NARRATIVE: CASE EVENT DATE: 2018
